FAERS Safety Report 12834371 (Version 1)
Quarter: 2016Q4

REPORT INFORMATION
  Report Type: Spontaneous
  Country: US (occurrence: US)
  Receive Date: 20161010
  Receipt Date: 20161010
  Transmission Date: 20170207
  Serious: No
  Sender: FDA-Public Use
  Company Number: US-PERRIGO-16US017937

PATIENT
  Age: 61 Year
  Sex: Female
  Weight: 56.69 kg

DRUGS (1)
  1. NICOTINE POLACRILEX [Suspect]
     Active Substance: NICOTINE
     Indication: SMOKING CESSATION THERAPY
     Dosage: 1/2 PIECE, 20 TIMES DAILY
     Route: 002
     Dates: start: 20160706, end: 20160708

REACTIONS (4)
  - Tooth discolouration [Unknown]
  - Oral mucosal discolouration [Unknown]
  - Lip discolouration [Unknown]
  - Wrong technique in product usage process [Unknown]

NARRATIVE: CASE EVENT DATE: 20160707
